FAERS Safety Report 12227929 (Version 1)
Quarter: 2016Q2

REPORT INFORMATION
  Report Type: Report from Study
  Country: CA (occurrence: CA)
  Receive Date: 20160401
  Receipt Date: 20160401
  Transmission Date: 20160815
  Serious: Yes (Death, Hospitalization, Disabling, Other)
  Sender: FDA-Public Use
  Company Number: CA-ASTRAZENECA-2012SE90662

PATIENT
  Age: 24852 Day
  Sex: Male

DRUGS (11)
  1. OXYGEN. [Concomitant]
     Active Substance: OXYGEN
  2. ZOLADEX LA [Suspect]
     Active Substance: GOSERELIN ACETATE
     Indication: PROSTATE CANCER
     Route: 058
     Dates: start: 20121129
  3. ZOLADEX LA [Suspect]
     Active Substance: GOSERELIN ACETATE
     Indication: PROSTATE CANCER
     Route: 058
     Dates: start: 20150225
  4. ZOLADEX LA [Suspect]
     Active Substance: GOSERELIN ACETATE
     Indication: PROSTATE CANCER
     Dosage: 3.6 MG FOR THE FIRST THREE MONTHS AND THEN 10.8 MG EVERY THREE MONTHS
     Route: 058
     Dates: start: 20110110
  5. ZOLADEX LA [Suspect]
     Active Substance: GOSERELIN ACETATE
     Indication: PROSTATE CANCER
     Route: 058
     Dates: start: 20150825
  6. MAXERAN [Concomitant]
     Active Substance: METOCLOPRAMIDE HYDROCHLORIDE
     Indication: APPETITE DISORDER
     Dosage: THREE TIMES A DAY
  7. ZOLADEX LA [Suspect]
     Active Substance: GOSERELIN ACETATE
     Indication: PROSTATE CANCER
     Route: 058
     Dates: start: 20160222
  8. ASA [Concomitant]
     Active Substance: ASPIRIN
  9. ZOLADEX LA [Suspect]
     Active Substance: GOSERELIN ACETATE
     Indication: PROSTATE CANCER
     Route: 058
     Dates: start: 20151123
  10. DILAUDID [Concomitant]
     Active Substance: HYDROMORPHONE HYDROCHLORIDE
     Indication: ARTHRALGIA
     Dosage: AT BEDTIME
  11. ZYTIGA [Concomitant]
     Active Substance: ABIRATERONE ACETATE

REACTIONS (24)
  - Injection site haemorrhage [Unknown]
  - Constipation [Unknown]
  - Weight decreased [Unknown]
  - Nausea [Unknown]
  - Death [Fatal]
  - Musculoskeletal pain [Recovered/Resolved]
  - Injection site pain [Unknown]
  - Retching [Unknown]
  - Influenza like illness [Recovering/Resolving]
  - Vomiting [Unknown]
  - Malignant neoplasm progression [Not Recovered/Not Resolved]
  - Asthenia [Not Recovered/Not Resolved]
  - Dyspnoea [Unknown]
  - Hypersomnia [Unknown]
  - Arthralgia [Not Recovered/Not Resolved]
  - Fatigue [Not Recovered/Not Resolved]
  - Anaemia [Unknown]
  - Nocturia [Recovering/Resolving]
  - Peripheral swelling [Recovering/Resolving]
  - Pleural effusion [Unknown]
  - Deafness [Unknown]
  - Decreased appetite [Unknown]
  - Oxygen supplementation [Unknown]
  - Blood iron increased [Unknown]

NARRATIVE: CASE EVENT DATE: 20130301
